FAERS Safety Report 9986609 (Version 2)
Quarter: 2014Q1

REPORT INFORMATION
  Report Type: Report from Study
  Country: US (occurrence: US)
  Receive Date: 20140307
  Receipt Date: 20140307
  Transmission Date: 20141002
  Serious: No
  Sender: FDA-Public Use
  Company Number: US-ABBVIE-13P-163-1072600-00

PATIENT
  Age: 47 Year
  Sex: Female

DRUGS (7)
  1. HUMIRA [Suspect]
     Indication: COLITIS ULCERATIVE
     Route: 058
     Dates: start: 20130214
  2. SULFASALAZINE [Concomitant]
     Indication: COLITIS ULCERATIVE
  3. FOLIC ACID [Concomitant]
     Indication: PRODUCT USED FOR UNKNOWN INDICATION
  4. CALCIUM [Concomitant]
     Indication: PRODUCT USED FOR UNKNOWN INDICATION
  5. VITAMINS SUPPLEMENTS [Concomitant]
     Indication: VITAMIN SUPPLEMENTATION
  6. NORVASC [Concomitant]
     Indication: HYPERTENSION
  7. KLOR CON [Concomitant]
     Indication: MINERAL SUPPLEMENTATION

REACTIONS (3)
  - Injection site bruising [Not Recovered/Not Resolved]
  - Arthralgia [Unknown]
  - Injection site swelling [Unknown]
